FAERS Safety Report 7098267-7 (Version None)
Quarter: 2010Q4

REPORT INFORMATION
  Report Type: 
  Country: None (occurrence: None)
  Receive Date: 20101112
  Receipt Date: 20101029
  Transmission Date: 20110411
  Serious: Yes (Death)
  Sender: FDA-Public Use
  Company Number: US-MYLANLABS-2010S1016699

PATIENT
  Age: 57 Year
  Sex: Female
  Weight: 99.79 kg

DRUGS (7)
  1. FLUTICASONE PROPIONATE AND FORMOTEROL FUMARATE INHALATION SUSPENSION [Suspect]
     Indication: CHRONIC OBSTRUCTIVE PULMONARY DISEASE
     Dosage: FORMOTEROL FUMARATE10 MCG AND FLUTICASONE PROPIONATE 250 MCG
     Route: 055
     Dates: start: 20100819, end: 20100909
  2. MORPHINE [Suspect]
     Route: 065
  3. ACETAMINOPHEN AND HYDROCODONE BITARTRATE [Suspect]
     Indication: TOOTH EXTRACTION
     Dosage: 5/500 MG EVERY 6 HOURS AS NEEDED
     Route: 048
     Dates: start: 20100908
  4. FLUOXETINE [Suspect]
     Indication: DEPRESSION
     Route: 048
     Dates: start: 20070101, end: 20100909
  5. AMITRIPTYLINE HCL [Suspect]
     Route: 065
  6. BENICAR HCT [Concomitant]
     Indication: HYPERTENSION
     Dosage: 20MG/12.5MG
     Route: 048
     Dates: start: 20091007, end: 20100909
  7. OXYGEN [Concomitant]
     Indication: HYPOXIA
     Route: 055
     Dates: start: 20091201, end: 20100909

REACTIONS (1)
  - DRUG TOXICITY [None]
